FAERS Safety Report 9046214 (Version 1)
Quarter: 2013Q1

REPORT INFORMATION
  Report Type: Spontaneous
  Country: BR (occurrence: BR)
  Receive Date: 20130201
  Receipt Date: 20130201
  Transmission Date: 20140127
  Serious: Yes (Other)
  Sender: FDA-Public Use
  Company Number: PHHY2013BR007204

PATIENT
  Sex: Male
  Weight: 34 kg

DRUGS (3)
  1. RITALIN LA [Suspect]
     Indication: ATTENTION DEFICIT/HYPERACTIVITY DISORDER
     Dosage: 1 DF, UNK
  2. TOFRANIL [Concomitant]
     Indication: SLEEP DISORDER
     Dosage: UNK
     Dates: end: 2012
  3. AMYTRIL [Concomitant]
     Indication: SLEEP DISORDER

REACTIONS (7)
  - Movement disorder [Recovering/Resolving]
  - Upper limb fracture [Recovering/Resolving]
  - Arterial disorder [Recovering/Resolving]
  - Skin injury [Unknown]
  - Abnormal dreams [Recovering/Resolving]
  - Arthralgia [Recovering/Resolving]
  - Sleep disorder [Recovering/Resolving]
